FAERS Safety Report 5717274-7 (Version None)
Quarter: 2008Q2

REPORT INFORMATION
  Report Type: 
  Country: None (occurrence: None)
  Receive Date: 20080424
  Receipt Date: 20080418
  Transmission Date: 20081010
  Serious: Yes (Life-Threatening)
  Sender: FDA-Public Use
  Company Number: PHRM2008FR01369

PATIENT
  Sex: Male

DRUGS (8)
  1. FRACTAL [Suspect]
     Indication: HYPERCHOLESTEROLAEMIA
     Dosage: 1 DF, QD
     Route: 048
  2. GEMZAR [Suspect]
     Indication: PANCREATIC CARCINOMA
     Dosage: 2000 MG, TIW
     Route: 042
     Dates: start: 20070524
  3. ALLOPURINOL [Suspect]
     Route: 048
  4. LYRICA [Suspect]
     Dosage: 50 MG/DAY
     Route: 048
  5. DOXIUM [Suspect]
     Dosage: 2 DF/DAY
     Route: 048
  6. CORVASAL [Suspect]
     Dosage: 3 DF/DAY
     Route: 048
  7. HYDREA [Concomitant]
     Indication: POLYCYTHAEMIA
     Dosage: 2 DF/DAY
     Route: 048
     Dates: start: 20020101, end: 20070501
  8. OXALIPLATIN [Concomitant]
     Indication: PANCREATIC CARCINOMA
     Dosage: 140 MG, BIW
     Dates: start: 20070524, end: 20070830

REACTIONS (4)
  - DYSPNOEA EXERTIONAL [None]
  - OXYGEN SATURATION DECREASED [None]
  - PO2 DECREASED [None]
  - PULMONARY HYPERTENSION [None]
